FAERS Safety Report 6988488-3 (Version None)
Quarter: 2010Q3

REPORT INFORMATION
  Report Type: 
  Country: None (occurrence: None)
  Receive Date: 20100914
  Receipt Date: 20100901
  Transmission Date: 20110219
  Serious: Yes (Other)
  Sender: FDA-Public Use
  Company Number: GER/USA/10/0015707

PATIENT
  Age: 76 Year
  Sex: Female
  Weight: 68 kg

DRUGS (4)
  1. FLUCONAZOLE [Suspect]
     Indication: COCCIDIOIDOMYCOSIS
     Dosage: ORAL
     Route: 048
  2. AMPHOTERICIN B [Concomitant]
  3. TRIAMCINOLONE [Concomitant]
  4. AVASTIN (SIMVASTATIN) [Concomitant]

REACTIONS (8)
  - CHOROIDITIS [None]
  - DECREASED APPETITE [None]
  - FATIGUE [None]
  - HAEMORRHAGE INTRACRANIAL [None]
  - HEADACHE [None]
  - MACULAR OEDEMA [None]
  - RETINAL TOXICITY [None]
  - RETINAL VASCULAR DISORDER [None]
